FAERS Safety Report 17659148 (Version 1)
Quarter: 2020Q2

REPORT INFORMATION
  Report Type: Spontaneous
  Country: CA (occurrence: CA)
  Receive Date: 20200413
  Receipt Date: 20200413
  Transmission Date: 20200713
  Serious: Yes (Disabling)
  Sender: FDA-Public Use
  Company Number: CA-TERSERA THERAPEUTICS LLC-2020TRS000864

PATIENT

DRUGS (5)
  1. ANASTROZOLE. [Concomitant]
     Active Substance: ANASTROZOLE
     Indication: PRODUCT USED FOR UNKNOWN INDICATION
     Dosage: UNK
     Route: 065
  2. ZOLADEX [Suspect]
     Active Substance: GOSERELIN ACETATE
     Indication: CANCER HORMONAL THERAPY
     Dosage: 3.6 MG, 1 EVERY 28 DAYS
     Route: 058
  3. CALCIUM CITRATE [Concomitant]
     Active Substance: CALCIUM CITRATE
     Indication: PRODUCT USED FOR UNKNOWN INDICATION
     Dosage: UNK
     Route: 065
  4. CBD OIL [Concomitant]
     Active Substance: CANNABIDIOL\HERBALS
     Indication: PRODUCT USED FOR UNKNOWN INDICATION
     Dosage: UNK
     Route: 065
  5. EXEMESTANE. [Concomitant]
     Active Substance: EXEMESTANE
     Indication: PRODUCT USED FOR UNKNOWN INDICATION
     Dosage: UNK
     Route: 065

REACTIONS (13)
  - Apathy [Unknown]
  - Mania [Unknown]
  - Energy increased [Unknown]
  - Euphoric mood [Unknown]
  - Judgement impaired [Unknown]
  - Insomnia [Unknown]
  - Mood swings [Unknown]
  - Flank pain [Unknown]
  - Aggression [Unknown]
  - Fatigue [Unknown]
  - Mental fatigue [Unknown]
  - Depression [Unknown]
  - Thinking abnormal [Unknown]
